FAERS Safety Report 10482556 (Version 1)
Quarter: 2014Q3

REPORT INFORMATION
  Report Type: Spontaneous
  Country: IN (occurrence: IN)
  Receive Date: 20140929
  Receipt Date: 20140929
  Transmission Date: 20150326
  Serious: Yes (Hospitalization)
  Sender: FDA-Public Use
  Company Number: IN-ABBVIE-14P-078-1288645-00

PATIENT
  Age: 28 Year
  Sex: Female

DRUGS (4)
  1. FRISIUM [Suspect]
     Active Substance: CLOBAZAM
  2. VALPARIN [Suspect]
     Active Substance: VALPROATE SODIUM
     Indication: MYOCLONIC EPILEPSY
  3. FRISIUM [Suspect]
     Active Substance: CLOBAZAM
     Indication: MYOCLONIC EPILEPSY
  4. LEVETIRACETAM. [Suspect]
     Active Substance: LEVETIRACETAM
     Indication: MYOCLONIC EPILEPSY

REACTIONS (2)
  - Hepatitis A [Recovered/Resolved]
  - Convulsion [Recovered/Resolved]

NARRATIVE: CASE EVENT DATE: 201408
